FAERS Safety Report 5527619-9 (Version None)
Quarter: 2007Q4

REPORT INFORMATION
  Report Type: 
  Country: None (occurrence: None)
  Receive Date: 20071123
  Receipt Date: 20071112
  Transmission Date: 20080405
  Serious: Yes (Congenital Anomaly)
  Sender: FDA-Public Use
  Company Number: 2007-05058

PATIENT
  Sex: Male

DRUGS (7)
  1. TAMOXIFEN CITRATE [Suspect]
     Indication: METASTASES TO LIVER
     Dosage: 40 MG, DAILY, ORAL
     Route: 048
     Dates: start: 20020101, end: 20020101
  2. TAMOXIFEN CITRATE [Suspect]
     Indication: METASTATIC MALIGNANT MELANOMA
     Dosage: 40 MG, DAILY, ORAL
     Route: 048
     Dates: start: 20020101, end: 20020101
  3. CARMUSTINE [Suspect]
     Indication: METASTASES TO LIVER
     Dosage: 100 MG/M2, DAY 1 Q OTHER MONTH,
  4. CARMUSTINE [Suspect]
     Indication: METASTATIC MALIGNANT MELANOMA
     Dosage: 100 MG/M2, DAY 1 Q OTHER MONTH,
  5. DACARBAZINE [Suspect]
     Indication: METASTASES TO LIVER
     Dosage: 220 MG/M2, DAY 1-3,
     Dates: start: 20020101, end: 20020101
  6. CISPLATIN [Suspect]
     Indication: METASTASES TO LIVER
     Dosage: 25 MG/M2, DAYS 1-3,
     Dates: start: 20020101, end: 20020101
  7. CISPLATIN [Suspect]
     Indication: METASTATIC MALIGNANT MELANOMA
     Dosage: 25 MG/M2, DAYS 1-3,
     Dates: start: 20020101, end: 20020101

REACTIONS (4)
  - DRUG EXPOSURE DURING PREGNANCY [None]
  - HYPERMETROPIA [None]
  - MICROPHTHALMOS [None]
  - VISUAL DISTURBANCE [None]
